FAERS Safety Report 16566270 (Version 1)
Quarter: 2019Q3

REPORT INFORMATION
  Report Type: Spontaneous
  Country: US (occurrence: US)
  Receive Date: 20190712
  Receipt Date: 20190712
  Transmission Date: 20191004
  Serious: Yes (Death)
  Sender: FDA-Public Use
  Company Number: US-ASTRAZENECA-2019SE99658

PATIENT
  Sex: Female

DRUGS (2)
  1. SEROQUEL [Suspect]
     Active Substance: QUETIAPINE FUMARATE
     Indication: SLEEP DISORDER
     Dosage: GENERIC : DECREASING THE LOW DOSE OF 25MG, A QUARTER PILL AT A TIME OVER WEEKS, FOR 4 MONTHS.
     Route: 065
  2. SEROQUEL [Suspect]
     Active Substance: QUETIAPINE FUMARATE
     Indication: SLEEP DISORDER
     Route: 048

REACTIONS (4)
  - Gait disturbance [Unknown]
  - Product use in unapproved indication [Unknown]
  - Death [Fatal]
  - Off label use [Unknown]
